FAERS Safety Report 25101574 (Version 1)
Quarter: 2025Q1

REPORT INFORMATION
  Report Type: Spontaneous
  Country: US (occurrence: US)
  Receive Date: 20250320
  Receipt Date: 20250320
  Transmission Date: 20250408
  Serious: Yes (Other)
  Sender: ALCON
  Company Number: US-ALCON LABORATORIES-ALC2024US002185

PATIENT
  Age: 60 Year
  Sex: Female

DRUGS (3)
  1. PREDNISOLONE ACETATE [Suspect]
     Active Substance: PREDNISOLONE ACETATE
     Indication: Eye irritation
     Route: 065
  2. SYSTANE (HYPROMELLOSE 2910 (4000 MPA.S)) [Suspect]
     Active Substance: HYPROMELLOSE 2910 (4000 MPA.S)
     Indication: Eye irritation
     Route: 047
  3. DEXTRAN\HYPROMELLOSES [Suspect]
     Active Substance: DEXTRAN\HYPROMELLOSES
     Indication: Eye irritation
     Route: 047

REACTIONS (2)
  - Keratopathy [Recovered/Resolved]
  - Drug ineffective [Unknown]
